FAERS Safety Report 4760597-9 (Version None)
Quarter: 2005Q3

REPORT INFORMATION
  Report Type: 
  Country: None (occurrence: None)
  Receive Date: 20050826
  Receipt Date: 20041110
  Transmission Date: 20060218
  Serious: Yes (Hospitalization)
  Sender: FDA-Public Use
  Company Number: USA-2004-0017166

PATIENT
  Age: 51 Year
  Sex: Male

DRUGS (3)
  1. OXYCONTIN [Suspect]
     Indication: PAIN
     Dosage: 20 MG TID
     Dates: start: 20030901, end: 20031012
  2. TOPROL-XL [Concomitant]
  3. STOOL SOFTENER [Concomitant]

REACTIONS (1)
  - CONSTIPATION [None]
